FAERS Safety Report 23974347 (Version 1)
Quarter: 2024Q2

REPORT INFORMATION
  Report Type: Spontaneous
  Country: US (occurrence: US)
  Receive Date: 20240614
  Receipt Date: 20240614
  Transmission Date: 20240715
  Serious: No
  Sender: FDA-Public Use
  Company Number: US-SUN PHARMACEUTICAL INDUSTRIES LTD-2024R1-427924

PATIENT
  Age: 57 Year
  Sex: Female

DRUGS (1)
  1. LIOTHYRONINE [Suspect]
     Active Substance: LIOTHYRONINE
     Indication: Thyroidectomy
     Dosage: 5 MICROGRAM, DAILY
     Route: 065

REACTIONS (2)
  - Fatigue [Unknown]
  - Pain [Unknown]
